FAERS Safety Report 6907810-7 (Version None)
Quarter: 2010Q3

REPORT INFORMATION
  Report Type: 
  Country: None (occurrence: None)
  Receive Date: 20100712
  Receipt Date: 20100413
  Transmission Date: 20110219
  Serious: No
  Sender: FDA-Public Use
  Company Number: US-000035

PATIENT
  Sex: Female
  Weight: 28.5766 kg

DRUGS (4)
  1. KUVAN [Suspect]
     Indication: PHENYLKETONURIA
     Dosage: (100 MG 5X/DAY ORAL)
     Route: 048
     Dates: start: 20091209
  2. CLARITIN /00917501/ [Concomitant]
  3. NUTROPIN [Concomitant]
  4. NUTRIENTS WITHOUT PHENYLALANINE [Concomitant]

REACTIONS (3)
  - RASH ERYTHEMATOUS [None]
  - RASH MACULAR [None]
  - RASH PRURITIC [None]
